FAERS Safety Report 10226634 (Version 1)
Quarter: 2014Q2

REPORT INFORMATION
  Report Type: Spontaneous
  Country: US (occurrence: US)
  Receive Date: 20140609
  Receipt Date: 20140609
  Transmission Date: 20141212
  Serious: Yes (Other)
  Sender: FDA-Public Use
  Company Number: US-RB-068351-14

PATIENT
  Age: 37 Year
  Sex: Male

DRUGS (2)
  1. BUPRENORPHINE/NALOXONE [Suspect]
     Dosage: CUTTING
     Route: 060
     Dates: end: 20140525
  2. BUPRENORPHINE/NALOXONE [Suspect]
     Indication: DRUG DEPENDENCE
     Dosage: CUTTING
     Route: 060
     Dates: start: 20140527

REACTIONS (3)
  - Wrong technique in drug usage process [Not Recovered/Not Resolved]
  - Wrist fracture [Not Recovered/Not Resolved]
  - Forearm fracture [Not Recovered/Not Resolved]
